FAERS Safety Report 4299236-2 (Version None)
Quarter: 2004Q1

REPORT INFORMATION
  Report Type: 
  Country: None (occurrence: None)
  Receive Date: 20040217
  Receipt Date: 20040217
  Transmission Date: 20041129
  Serious: Yes (Life-Threatening)
  Sender: FDA-Public Use
  Company Number: None

PATIENT
  Age: 81 Year
  Sex: Female
  Weight: 74.8435 kg

DRUGS (9)
  1. METFORMIN HCL [Suspect]
     Indication: HYPERGLYCAEMIA
     Dosage: 1 TAB BY MOUTH TWICE DAILY
     Dates: start: 20040131, end: 20040131
  2. THYROID TAB [Concomitant]
  3. LASIX [Concomitant]
  4. K-DUR 10 [Concomitant]
  5. SPIRONOLACTONE [Concomitant]
  6. NEURONTIN [Concomitant]
  7. LUMIGAN [Concomitant]
  8. GLUCOTROL [Concomitant]
  9. METROPROLOL [Concomitant]

REACTIONS (1)
  - PHARMACEUTICAL PRODUCT COMPLAINT [None]
